FAERS Safety Report 17465658 (Version 1)
Quarter: 2020Q1

REPORT INFORMATION
  Report Type: Spontaneous
  Country: US (occurrence: US)
  Receive Date: 20200227
  Receipt Date: 20200227
  Transmission Date: 20200409
  Serious: No
  Sender: FDA-Public Use
  Company Number: US-ELI_LILLY_AND_COMPANY-US202002012967

PATIENT
  Age: 68 Year
  Sex: Female

DRUGS (2)
  1. FORTEO [Suspect]
     Active Substance: TERIPARATIDE
     Indication: IMPAIRED HEALING
     Dosage: UNK UNK, UNKNOWN
     Route: 065
     Dates: start: 20190726
  2. FORTEO [Suspect]
     Active Substance: TERIPARATIDE
     Indication: SPINAL FRACTURE
     Dosage: UNK UNK, UNKNOWN
     Route: 065
     Dates: start: 20190726

REACTIONS (4)
  - Vertigo [Unknown]
  - Off label use [Unknown]
  - Dizziness [Unknown]
  - Foreign body in ear [Unknown]

NARRATIVE: CASE EVENT DATE: 201911
